FAERS Safety Report 19959293 (Version 1)
Quarter: 2021Q4

REPORT INFORMATION
  Report Type: Spontaneous
  Country: US (occurrence: US)
  Receive Date: 20211014
  Receipt Date: 20211014
  Transmission Date: 20220304
  Serious: No
  Sender: FDA-Public Use
  Company Number: None

PATIENT
  Age: 47 Year
  Sex: Male
  Weight: 81 kg

DRUGS (1)
  1. JYNARQUE [Suspect]
     Active Substance: TOLVAPTAN
     Dates: start: 20210911, end: 20211008

REACTIONS (3)
  - Aspartate aminotransferase increased [None]
  - Alanine aminotransferase increased [None]
  - Therapy interrupted [None]

NARRATIVE: CASE EVENT DATE: 20211008
